FAERS Safety Report 6696741-6 (Version None)
Quarter: 2010Q2

REPORT INFORMATION
  Report Type: 
  Country: None (occurrence: None)
  Receive Date: 20100426
  Receipt Date: 20100414
  Transmission Date: 20101027
  Serious: Yes (Hospitalization)
  Sender: FDA-Public Use
  Company Number: US-SANOFI-AVENTIS-2010SA023096

PATIENT
  Age: 60 Year
  Sex: Female
  Weight: 64 kg

DRUGS (14)
  1. DDAVP [Suspect]
     Indication: BLADDER DISORDER
     Route: 048
     Dates: start: 20090201, end: 20090401
  2. DDAVP [Suspect]
     Route: 048
     Dates: start: 20090401
  3. INTERFERON BETA [Suspect]
     Indication: MULTIPLE SCLEROSIS
     Route: 058
     Dates: start: 20040721, end: 20090401
  4. INTERFERON BETA [Suspect]
     Route: 058
  5. ENALAPRIL MALEATE AND HYDROCHLOROTHIAZIDE [Suspect]
     Dates: end: 20090401
  6. NAPROXEN SODIUM [Suspect]
     Indication: TOOTHACHE
     Dates: start: 20090401
  7. ADVIL [Suspect]
     Indication: TOOTHACHE
     Dates: start: 20090401
  8. NEURONTIN [Concomitant]
  9. NEURONTIN [Concomitant]
  10. FOSAMAX [Concomitant]
     Indication: OSTEOPOROSIS
  11. MACROBID [Concomitant]
  12. OXYBUTYNIN CHLORIDE [Concomitant]
     Indication: BLADDER DISORDER
  13. TYLENOL-500 [Concomitant]
  14. ASPIRIN [Concomitant]

REACTIONS (3)
  - BLOOD SODIUM DECREASED [None]
  - BRAIN OEDEMA [None]
  - LETHARGY [None]
